FAERS Safety Report 9102639 (Version 1)
Quarter: 2013Q1

REPORT INFORMATION
  Report Type: Report from Study
  Country: FR (occurrence: FR)
  Receive Date: 20130218
  Receipt Date: 20130218
  Transmission Date: 20140127
  Serious: Yes (Other)
  Sender: FDA-Public Use
  Company Number: FR-BRISTOL-MYERS SQUIBB COMPANY-17387879

PATIENT
  Age: 64 Year
  Sex: Male

DRUGS (1)
  1. CETUXIMAB [Suspect]
     Indication: HEAD AND NECK CANCER
     Dates: start: 20110512

REACTIONS (3)
  - Mucosal inflammation [Recovered/Resolved]
  - Aphagia [Recovered/Resolved]
  - Dermatitis [Recovered/Resolved]
